FAERS Safety Report 7025451-0 (Version None)
Quarter: 2010Q4

REPORT INFORMATION
  Report Type: 
  Country: None (occurrence: None)
  Receive Date: 20101001
  Receipt Date: 20100929
  Transmission Date: 20110411
  Serious: Yes (Death, Other)
  Sender: FDA-Public Use
  Company Number: PHHY2009CA54309

PATIENT
  Sex: Male

DRUGS (7)
  1. EXJADE [Suspect]
     Indication: MYELODYSPLASTIC SYNDROME
     Dosage: 1625 MG, QD
     Route: 048
     Dates: start: 20091114, end: 20091201
  2. EXJADE [Suspect]
     Indication: IRON OVERLOAD
     Dosage: 625 MG, QD
  3. RED BLOOD CELLS [Concomitant]
  4. PLATELETS [Concomitant]
  5. METFORMIN HCL [Concomitant]
  6. TRANEXAMIC ACID [Concomitant]
  7. FLUCONAZOLE [Concomitant]

REACTIONS (7)
  - DEATH [None]
  - EXFOLIATIVE RASH [None]
  - GASTROINTESTINAL HAEMORRHAGE [None]
  - HAEMOGLOBIN DECREASED [None]
  - NEUTROPHIL COUNT DECREASED [None]
  - PRURITUS GENERALISED [None]
  - WHITE BLOOD CELL COUNT DECREASED [None]
